FAERS Safety Report 14215092 (Version 1)
Quarter: 2017Q4

REPORT INFORMATION
  Report Type: Spontaneous
  Country: US (occurrence: US)
  Receive Date: 20171122
  Receipt Date: 20171122
  Transmission Date: 20180321
  Serious: Yes (Other)
  Sender: FDA-Public Use
  Company Number: US-ROCHE-1918059

PATIENT
  Age: 50 Year
  Sex: Female
  Weight: 69.46 kg

DRUGS (5)
  1. BENADRYL [Concomitant]
     Active Substance: DIPHENHYDRAMINE HYDROCHLORIDE
     Dosage: YES
     Route: 065
  2. TAXOTERE [Concomitant]
     Active Substance: DOCETAXEL
     Dosage: YES
     Route: 065
  3. PERJETA [Suspect]
     Active Substance: PERTUZUMAB
     Indication: HER-2 POSITIVE BREAST CANCER
     Dosage: ONGOING: YES
     Route: 065
     Dates: start: 201608
  4. HERCEPTIN [Suspect]
     Active Substance: TRASTUZUMAB
     Indication: HER-2 POSITIVE BREAST CANCER
     Dosage: ONGOING: NO
     Route: 042
     Dates: start: 2005
  5. HERCEPTIN [Suspect]
     Active Substance: TRASTUZUMAB
     Dosage: YES
     Route: 042
     Dates: start: 201608

REACTIONS (10)
  - Anaphylactic reaction [Unknown]
  - Personality change [Unknown]
  - Fatigue [Recovered/Resolved]
  - Pruritus [Unknown]
  - Thinking abnormal [Unknown]
  - Loss of consciousness [Recovered/Resolved]
  - Mental disorder [Unknown]
  - Dyspnoea [Unknown]
  - Onychomycosis [Unknown]
  - Anger [Unknown]

NARRATIVE: CASE EVENT DATE: 201608
